FAERS Safety Report 11897189 (Version 1)
Quarter: 2016Q1

REPORT INFORMATION
  Report Type: Report from Study
  Country: PL (occurrence: PL)
  Receive Date: 20160108
  Receipt Date: 20160108
  Transmission Date: 20160526
  Serious: Yes (Other)
  Sender: FDA-Public Use
  Company Number: PL-ROCHE-1688775

PATIENT

DRUGS (5)
  1. TELAPREVIR [Suspect]
     Active Substance: TELAPREVIR
     Indication: CHRONIC HEPATITIS C
     Dosage: 750 MG EVERY 8 HOURS OR 1125 MG TWICE DAILY ORALLY WITH FOOD
     Route: 048
  2. RIBAVIRIN. [Suspect]
     Active Substance: RIBAVIRIN
     Indication: CHRONIC HEPATITIS C
     Dosage: (1000 MG IF BODY WEIGHT WAS {75 KG,1200 MG IF BODY WEIGHT WAS }75 KG).
     Route: 048
  3. PEGINTERFERON ALFA-2B [Suspect]
     Active Substance: PEGINTERFERON ALFA-2B
     Indication: CHRONIC HEPATITIS C
     Route: 058
  4. RIBAVIRIN. [Suspect]
     Active Substance: RIBAVIRIN
     Indication: CHRONIC HEPATITIS C
     Dosage: (800MG IF BODY WEIGHT WAS {65 KG, 1000 MG IF BODY WEIGHT WAS 65-85 KG, AND 1200 MG IF BODY WEIGHT WA
     Route: 048
  5. PEG-INTERFERON ALFA 2A [Suspect]
     Active Substance: PEGINTERFERON ALFA-2A
     Indication: CHRONIC HEPATITIS C
     Route: 058

REACTIONS (5)
  - Drug ineffective [Unknown]
  - Renal impairment [Unknown]
  - Anaemia [Unknown]
  - Influenza like illness [Unknown]
  - Acute psychosis [Unknown]
